FAERS Safety Report 9506416 (Version 1)
Quarter: 2013Q1

REPORT INFORMATION
  Report Type: Spontaneous
  Country: US (occurrence: None)
  Receive Date: 20130305
  Receipt Date: 20130305
  Transmission Date: 20140127
  Serious: Yes (Other)
  Sender: FDA-Public Use
  Company Number: 163-21880-11091404

PATIENT
  Age: 68 Year
  Sex: Female

DRUGS (9)
  1. REVLIMID (LENALIDOMIDE) (25 MILLIGRAM, CAPSULES) [Suspect]
     Indication: PLASMA CELL MYELOMA
     Dosage: 14 IN 21 D
     Route: 048
     Dates: start: 201107
  2. LIPITOR [Concomitant]
  3. CHEMOTHERAPY [Concomitant]
  4. NEXIUM [Concomitant]
  5. SYNTHROID [Concomitant]
  6. CALTRATE [Concomitant]
  7. LORATADINE [Concomitant]
  8. VITAMIN D [Concomitant]
  9. ASPIRIN [Concomitant]

REACTIONS (4)
  - Neuropathy peripheral [None]
  - Paraesthesia [None]
  - Rash [None]
  - Pruritus [None]
